FAERS Safety Report 4443599-1 (Version None)
Quarter: 2004Q3

REPORT INFORMATION
  Report Type: 
  Country: None (occurrence: None)
  Receive Date: 20040903
  Receipt Date: 20040903
  Transmission Date: 20050211
  Serious: No
  Sender: FDA-Public Use
  Company Number: None

PATIENT
  Age: 72 Year
  Sex: Female

DRUGS (14)
  1. LIPITOR [Suspect]
     Indication: HYPERLIPIDAEMIA
     Dosage: 20 MG DAILY PO
     Route: 048
     Dates: start: 20030611
  2. OXY IR [Concomitant]
  3. COZAAR [Concomitant]
  4. PREMARIN [Concomitant]
  5. GLUCOPHAGE [Concomitant]
  6. GLYBURIDE [Concomitant]
  7. DYAZIDE [Concomitant]
  8. ATENOLOL [Concomitant]
  9. ZYRTEC [Concomitant]
  10. SYNTHROID [Concomitant]
  11. DSS [Concomitant]
  12. PEPCID [Concomitant]
  13. MSM [Concomitant]
  14. ASPIRIN [Concomitant]

REACTIONS (2)
  - DISORIENTATION [None]
  - MEMORY IMPAIRMENT [None]
